FAERS Safety Report 5957150-8 (Version None)
Quarter: 2008Q4

REPORT INFORMATION
  Report Type: 
  Country: None (occurrence: None)
  Receive Date: 20081118
  Receipt Date: 20081106
  Transmission Date: 20090506
  Serious: Yes (Other)
  Sender: FDA-Public Use
  Company Number: US-JNJCH-2008054567

PATIENT
  Age: 34 Year
  Sex: Male
  Weight: 112.5 kg

DRUGS (4)
  1. BENADRYL [Suspect]
     Indication: URTICARIA
     Dosage: TEXT:UNSPECIFIED
     Route: 065
  2. CHANTIX [Suspect]
     Indication: SMOKING CESSATION THERAPY
     Dosage: TEXT:0.5 TO 1 MG ONCE TO TWICE DAILY
     Route: 065
     Dates: start: 20080801, end: 20080923
  3. PREDNISONE TAB [Suspect]
     Indication: DYSPNOEA
     Route: 065
  4. DRUG, UNSPECIFIED [Suspect]
     Indication: URTICARIA
     Dosage: TEXT:UNSPECIFIED
     Route: 042

REACTIONS (9)
  - BLOOD URINE PRESENT [None]
  - CHEST DISCOMFORT [None]
  - DRUG INEFFECTIVE [None]
  - DYSPNOEA [None]
  - LIVER FUNCTION TEST ABNORMAL [None]
  - OEDEMA PERIPHERAL [None]
  - SEDATION [None]
  - URTICARIA [None]
  - VOMITING [None]
